FAERS Safety Report 18066960 (Version 1)
Quarter: 2020Q3

REPORT INFORMATION
  Report Type: Other
  Country: DE (occurrence: DE)
  Receive Date: 20200724
  Receipt Date: 20200724
  Transmission Date: 20201103
  Serious: No
  Sender: FDA-Public Use
  Company Number: DE-LUPIN PHARMACEUTICALS INC.-2020-02285

PATIENT
  Sex: Female

DRUGS (1)
  1. LEVETIRACETAM?HORMOSAN [Suspect]
     Active Substance: LEVETIRACETAM
     Indication: PRODUCT USED FOR UNKNOWN INDICATION
     Dosage: 2000 MILLIGRAM, QD
     Route: 065

REACTIONS (2)
  - Dyspepsia [Unknown]
  - Abdominal pain [Unknown]
